FAERS Safety Report 9717829 (Version 1)
Quarter: 2013Q4

REPORT INFORMATION
  Report Type: Spontaneous
  Country: US (occurrence: US)
  Receive Date: 20131125
  Receipt Date: 20131125
  Transmission Date: 20140711
  Serious: No
  Sender: FDA-Public Use
  Company Number: US-VIVUS-2012V1000252

PATIENT
  Age: 53 Year
  Sex: Male
  Weight: 131.66 kg

DRUGS (8)
  1. QSYMIA [Suspect]
     Indication: PRODUCT USED FOR UNKNOWN INDICATION
     Route: 048
     Dates: start: 20121101
  2. QSYMIA [Suspect]
     Route: 048
  3. METFORMIN [Concomitant]
     Indication: DIABETES MELLITUS
     Route: 048
     Dates: start: 2007
  4. LEVOXYL [Concomitant]
     Indication: HYPOTHYROIDISM
     Route: 048
  5. ENDOCIN [Concomitant]
     Indication: INFLAMMATION
     Route: 048
  6. WELLBUTRIN [Concomitant]
     Indication: ANXIETY
     Route: 048
  7. LYRICA [Concomitant]
     Indication: PAIN IN EXTREMITY
     Route: 048
  8. FLONASE [Concomitant]
     Indication: RHINITIS ALLERGIC
     Route: 045
     Dates: start: 2002

REACTIONS (3)
  - Sinus disorder [Not Recovered/Not Resolved]
  - Dry mouth [Not Recovered/Not Resolved]
  - Vision blurred [Not Recovered/Not Resolved]
